FAERS Safety Report 25272198 (Version 1)
Quarter: 2025Q2

REPORT INFORMATION
  Report Type: Spontaneous
  Country: US (occurrence: US)
  Receive Date: 20250506
  Receipt Date: 20250506
  Transmission Date: 20250717
  Serious: No
  Sender: ALCON
  Company Number: US-ALCON LABORATORIES-ALC2025US000853

PATIENT
  Age: 83 Year
  Sex: Female

DRUGS (1)
  1. ROCKLATAN [Suspect]
     Active Substance: LATANOPROST\NETARSUDIL MESYLATE
     Indication: Product used for unknown indication
     Route: 047

REACTIONS (5)
  - Product packaging difficult to open [Unknown]
  - Product container issue [Unknown]
  - Product dose omission issue [Unknown]
  - Product lot number issue [Unknown]
  - Ocular discomfort [Unknown]
